FAERS Safety Report 7971215-0 (Version None)
Quarter: 2011Q4

REPORT INFORMATION
  Report Type: 
  Country: None (occurrence: None)
  Receive Date: 20111212
  Receipt Date: 20111129
  Transmission Date: 20120403
  Serious: Yes (Hospitalization)
  Sender: FDA-Public Use
  Company Number: PHEH2011US008853

PATIENT
  Sex: Female

DRUGS (1)
  1. GLEEVEC [Suspect]
     Indication: CHRONIC MYELOID LEUKAEMIA
     Dosage: 400 MG, DAILY
     Route: 048
     Dates: start: 20100119

REACTIONS (6)
  - PAIN IN EXTREMITY [None]
  - MUSCLE SPASMS [None]
  - INTERVERTEBRAL DISC PROTRUSION [None]
  - PAIN [None]
  - ASTHENIA [None]
  - NAUSEA [None]
